FAERS Safety Report 6557162-X (Version None)
Quarter: 2010Q1

REPORT INFORMATION
  Report Type: 
  Country: None (occurrence: None)
  Receive Date: 20100127
  Receipt Date: 20100127
  Transmission Date: 20100710
  Serious: Yes (Hospitalization, Disabling)
  Sender: FDA-Public Use
  Company Number: None

PATIENT
  Age: 68 Year
  Sex: Male
  Weight: 74.8435 kg

DRUGS (1)
  1. WHITENING TOOTHPASTE NATURAL WHITE [Suspect]
     Indication: SENSITIVITY OF TEETH
     Dosage: REGULAR TOOTHBRUSH DAILY

REACTIONS (1)
  - ORAL DISCOMFORT [None]
